FAERS Safety Report 13795779 (Version 1)
Quarter: 2017Q3

REPORT INFORMATION
  Report Type: Spontaneous
  Country: US (occurrence: US)
  Receive Date: 20170726
  Receipt Date: 20170726
  Transmission Date: 20171127
  Serious: Yes (Hospitalization, Other)
  Sender: FDA-Public Use
  Company Number: US-LUNDBECK-DKLU2034498

PATIENT
  Age: 44 Year
  Sex: Female

DRUGS (1)
  1. NORTHERA [Suspect]
     Active Substance: DROXIDOPA
     Indication: PRODUCT USED FOR UNKNOWN INDICATION
     Dosage: NOT TRITRATING
     Route: 048

REACTIONS (5)
  - Blood sodium decreased [Unknown]
  - Photophobia [Unknown]
  - Migraine [Unknown]
  - Intervertebral disc protrusion [Unknown]
  - Optic neuritis [Unknown]

NARRATIVE: CASE EVENT DATE: 20170615
